FAERS Safety Report 6235555-8 (Version None)
Quarter: 2009Q2

REPORT INFORMATION
  Report Type: 
  Country: None (occurrence: None)
  Receive Date: 20090618
  Receipt Date: 20090127
  Transmission Date: 20091009
  Serious: No
  Sender: FDA-Public Use
  Company Number: US-ASTRAZENECA-2009UW02436

PATIENT
  Age: 87 Year
  Sex: Female

DRUGS (1)
  1. RHINOCORT [Suspect]
     Indication: SINUS DISORDER
     Route: 045
     Dates: start: 20081101

REACTIONS (2)
  - ABNORMAL DREAMS [None]
  - RHINORRHOEA [None]
